FAERS Safety Report 19464583 (Version 3)
Quarter: 2021Q4

REPORT INFORMATION
  Report Type: Report from Study
  Country: MX (occurrence: MX)
  Receive Date: 20210626
  Receipt Date: 20211129
  Transmission Date: 20220303
  Serious: Yes (Life-Threatening, Other)
  Sender: FDA-Public Use
  Company Number: MX-NOVARTISPH-NVSC2021MX138450

PATIENT
  Age: 28 Year
  Sex: Female

DRUGS (3)
  1. TASIGNA [Suspect]
     Active Substance: NILOTINIB
     Indication: Chronic myeloid leukaemia
     Dosage: 800 MG, QD
     Route: 048
     Dates: start: 20121213
  2. TASIGNA [Suspect]
     Active Substance: NILOTINIB
     Dosage: 400 MG, Q12H(4 YEARS AGO APPROXIMATELY)
     Route: 048
     Dates: start: 20121213
  3. MISOPROSTOL [Concomitant]
     Active Substance: MISOPROSTOL
     Indication: Product used for unknown indication
     Dosage: 200 MG, QD
     Route: 048

REACTIONS (15)
  - Heavy menstrual bleeding [Unknown]
  - Abdominal pain [Recovering/Resolving]
  - Pallor [Recovering/Resolving]
  - Renal pain [Unknown]
  - Pain [Recovering/Resolving]
  - Dizziness [Recovering/Resolving]
  - Laboratory test abnormal [Recovering/Resolving]
  - Dysstasia [Recovering/Resolving]
  - Vaginal haemorrhage [Unknown]
  - Anaemia [Recovering/Resolving]
  - Uterine leiomyoma [Recovering/Resolving]
  - Nausea [Recovering/Resolving]
  - Inappropriate schedule of product administration [Unknown]
  - Vomiting [Recovering/Resolving]
  - Hyperhidrosis [Unknown]

NARRATIVE: CASE EVENT DATE: 20121213
